FAERS Safety Report 8255598-2 (Version None)
Quarter: 2012Q1

REPORT INFORMATION
  Report Type: 
  Country: None (occurrence: None)
  Receive Date: 20120322
  Receipt Date: 20111202
  Transmission Date: 20120608
  Serious: Yes (Hospitalization)
  Sender: FDA-Public Use
  Company Number: UTC-013073

PATIENT
  Age: 63 Year
  Sex: Male
  Weight: 85.45 kg

DRUGS (2)
  1. VIAGRA [Concomitant]
  2. TYVASO [Suspect]
     Indication: PULMONARY ARTERIAL HYPERTENSION
     Dosage: 288 MCG (72 MCG, 4 IN 1 D), INHALATION
     Route: 055
     Dates: start: 20110405

REACTIONS (1)
  - ADVERSE DRUG REACTION [None]
